FAERS Safety Report 9129408 (Version 1)
Quarter: 2013Q1

REPORT INFORMATION
  Report Type: Spontaneous
  Country: US (occurrence: US)
  Receive Date: 20130228
  Receipt Date: 20130228
  Transmission Date: 20140127
  Serious: No
  Sender: FDA-Public Use
  Company Number: US-ABBOTT-13P-163-1034166-00

PATIENT
  Age: 64 Year
  Sex: Male
  Weight: 69.01 kg

DRUGS (15)
  1. ANDROGEL [Suspect]
     Indication: BLOOD TESTOSTERONE DECREASED
     Dosage: 2 PUMP ACTUATIONS PER DAY.
     Dates: start: 20121229
  2. LEVOTHYROXINE [Concomitant]
     Indication: THYROID DISORDER
  3. CELEXA [Concomitant]
     Indication: DEPRESSION
  4. TOPAMAX [Concomitant]
     Indication: ANXIETY
  5. TOPAMAX [Concomitant]
     Indication: DYSKINESIA
  6. LIOTHYRONINE [Concomitant]
     Indication: THYROID DISORDER
  7. ARIMIDEX [Concomitant]
     Indication: ANTIOESTROGEN THERAPY
  8. MULTIVITAMIN [Concomitant]
     Indication: PRODUCT USED FOR UNKNOWN INDICATION
  9. VITAMIN D3 [Concomitant]
     Indication: PRODUCT USED FOR UNKNOWN INDICATION
  10. FISH OIL [Concomitant]
     Indication: PRODUCT USED FOR UNKNOWN INDICATION
  11. CALCIUM [Concomitant]
     Indication: PRODUCT USED FOR UNKNOWN INDICATION
  12. NIACIN [Concomitant]
     Indication: PRODUCT USED FOR UNKNOWN INDICATION
  13. 5 HTP [Concomitant]
     Indication: ANXIETY
  14. DHEA [Concomitant]
     Indication: ANXIETY
  15. GABAPENTIN [Concomitant]
     Indication: ANXIETY

REACTIONS (1)
  - Insomnia [Not Recovered/Not Resolved]
